FAERS Safety Report 9564133 (Version 2)
Quarter: 2014Q1

REPORT INFORMATION
  Report Type: Spontaneous
  Country: US (occurrence: US)
  Receive Date: 20130929
  Receipt Date: 20140328
  Transmission Date: 20141002
  Serious: No
  Sender: FDA-Public Use
  Company Number: US-009507513-1309USA013599

PATIENT
  Sex: Female

DRUGS (1)
  1. CORICIDIN HBP COUGH AND COLD [Suspect]
     Indication: NASOPHARYNGITIS
     Dosage: UNK, UNKNOWN
     Route: 048
     Dates: start: 20130911

REACTIONS (4)
  - Eyelid irritation [Recovered/Resolved]
  - Paraesthesia [Recovered/Resolved]
  - Eyelid pain [Recovered/Resolved]
  - Stress [Recovered/Resolved]
